FAERS Safety Report 6726492-0 (Version None)
Quarter: 2010Q2

REPORT INFORMATION
  Report Type: 
  Country: None (occurrence: None)
  Receive Date: 20100514
  Receipt Date: 20100512
  Transmission Date: 20101027
  Serious: Yes (Life-Threatening)
  Sender: FDA-Public Use
  Company Number: FR-ROCHE-699981

PATIENT
  Sex: Female
  Weight: 100 kg

DRUGS (12)
  1. TOCILIZUMAB [Suspect]
     Indication: RHEUMATOID ARTHRITIS
     Dosage: DOSAGE FORM :INFUSION, DATE OF LAST DOSE PRIOR TO SAE
     Route: 042
     Dates: start: 20050915, end: 20100303
  2. BLINDED TOCILIZUMAB [Suspect]
     Indication: RHEUMATOID ARTHRITIS
     Route: 042
  3. METHOTREXATE [Concomitant]
     Dates: start: 20070201
  4. FOLIC ACID [Concomitant]
     Dates: start: 20061212
  5. PARACETAMOL [Concomitant]
     Dates: start: 20050101
  6. PERINDOPRIL [Concomitant]
     Dates: start: 20050310
  7. GLIMEPIRIDE [Concomitant]
     Dates: start: 20050101
  8. ALLOPURINOL [Concomitant]
     Dates: start: 20050101
  9. KARDEGIC [Concomitant]
     Dates: start: 20050310
  10. INDAPAMIDE [Concomitant]
     Dates: start: 20050101
  11. ATORVASTATIN CALCIUM [Concomitant]
     Dates: start: 20080215
  12. BROMAZEPAM [Concomitant]
     Dates: start: 20080814

REACTIONS (1)
  - RECTAL CANCER STAGE I [None]
